FAERS Safety Report 6863064-1 (Version None)
Quarter: 2010Q3

REPORT INFORMATION
  Report Type: 
  Country: None (occurrence: None)
  Receive Date: 20100721
  Receipt Date: 20100715
  Transmission Date: 20110219
  Serious: Yes (Hospitalization)
  Sender: FDA-Public Use
  Company Number: ID-EISAI INC.-E2020-07080-SPO-ID

PATIENT
  Age: 82 Year
  Sex: Female

DRUGS (8)
  1. ARICEPT [Suspect]
     Indication: DEMENTIA
     Route: 048
     Dates: end: 20100101
  2. ARICEPT [Suspect]
     Route: 048
     Dates: start: 20100101
  3. GLUCOPHAGE [Concomitant]
     Indication: DIABETES MELLITUS
  4. HERBESSER [Concomitant]
  5. NEXIUM [Concomitant]
  6. COZAAR [Concomitant]
     Indication: HYPERTENSION
  7. ATIVAN [Concomitant]
  8. NEUROBION [Concomitant]

REACTIONS (2)
  - ELECTROLYTE IMBALANCE [None]
  - TREMOR [None]
